FAERS Safety Report 9145324 (Version 1)
Quarter: 2013Q1

REPORT INFORMATION
  Report Type: Spontaneous
  Country: BR (occurrence: BR)
  Receive Date: 20130307
  Receipt Date: 20130307
  Transmission Date: 20140127
  Serious: Yes (Other)
  Sender: FDA-Public Use
  Company Number: BR-ACCORD-016661

PATIENT
  Age: 44 Year
  Sex: Female
  Weight: 65.5 kg

DRUGS (5)
  1. PACLITAXEL [Suspect]
     Indication: CERVIX CARCINOMA
     Dosage: 2ND CYCLE
     Route: 042
     Dates: start: 20130102, end: 20130102
  2. DEXAMETHASONE [Concomitant]
     Route: 042
     Dates: start: 20130102, end: 20130102
  3. RANITIDINE [Concomitant]
     Route: 042
     Dates: start: 20130102, end: 20130102
  4. METOCLOPRAMIDE [Concomitant]
     Route: 042
     Dates: start: 20130102, end: 20130102
  5. ONDASETRON [Concomitant]
     Route: 042
     Dates: start: 20130102, end: 20130102

REACTIONS (5)
  - Erythema [Recovered/Resolved]
  - Dyspnoea [Recovered/Resolved]
  - Tachycardia [Recovered/Resolved]
  - Hypertension [Recovered/Resolved]
  - Off label use [Unknown]
